FAERS Safety Report 9233838 (Version 1)
Quarter: 2013Q2

REPORT INFORMATION
  Report Type: Spontaneous
  Country: US (occurrence: US)
  Receive Date: 20130416
  Receipt Date: 20130416
  Transmission Date: 20140414
  Serious: No
  Sender: FDA-Public Use
  Company Number: US-BANPHARM-20120078

PATIENT
  Age: 66 Year
  Sex: Female
  Weight: 72.72 kg

DRUGS (3)
  1. ALEVE LIQUID GELS 220 MG [Suspect]
     Dosage: 1 DF, PRN,
     Route: 048
  2. HORMONE PILL [Concomitant]
     Route: 048
  3. BONE DENSITY MEDICATION [Concomitant]

REACTIONS (1)
  - Urticaria [Not Recovered/Not Resolved]
